FAERS Safety Report 14797808 (Version 1)
Quarter: 2018Q2

REPORT INFORMATION
  Report Type: Report from Study
  Country: IT (occurrence: IT)
  Receive Date: 20180424
  Receipt Date: 20180424
  Transmission Date: 20180711
  Serious: Yes (Other)
  Sender: FDA-Public Use
  Company Number: IT-CONCORDIA PHARMACEUTICALS INC.-E2B_00011299

PATIENT
  Age: 92 Year
  Sex: Female

DRUGS (4)
  1. LASIX [Concomitant]
     Active Substance: FUROSEMIDE
  2. CARDIRENE 160 MG POLVERE PER SOLUZIONE ORALE [Concomitant]
  3. PROVISACOR 10 MG COMPRESSE RIVESTITE CON FILM [Concomitant]
  4. LANOXIN [Suspect]
     Active Substance: DIGOXIN
     Indication: HYPERTENSION
     Route: 048

REACTIONS (3)
  - Oral pain [Recovering/Resolving]
  - Vomiting [Recovering/Resolving]
  - Decreased appetite [Recovering/Resolving]

NARRATIVE: CASE EVENT DATE: 20180330
